FAERS Safety Report 10338107 (Version 1)
Quarter: 2014Q3

REPORT INFORMATION
  Report Type: Not Available
  Country: US (occurrence: US)
  Receive Date: 20140724
  Receipt Date: 20140724
  Transmission Date: 20150326
  Serious: Yes (Other)
  Sender: FDA-Public Use
  Company Number: US-LUPIN PHARMACEUTICALS INC.-E2B_00002292

PATIENT
  Age: 59 Year
  Sex: Female
  Weight: 57.66 kg

DRUGS (5)
  1. IMIPRAMINE HYDROCHLORIDE TABLETS 25MG [Suspect]
     Active Substance: IMIPRAMINE HYDROCHLORIDE
     Dates: start: 20140620, end: 20140628
  2. VITAMIN D [Concomitant]
     Active Substance: CHOLECALCIFEROL
     Indication: PRODUCT USED FOR UNKNOWN INDICATION
  3. ASPIRIN. [Concomitant]
     Active Substance: ASPIRIN
     Indication: CEREBROVASCULAR ACCIDENT
  4. BONIVA [Concomitant]
     Active Substance: IBANDRONATE SODIUM
     Indication: PRODUCT USED FOR UNKNOWN INDICATION
     Route: 065
  5. IMIPRAMINE HYDROCHLORIDE TABLETS 25MG [Suspect]
     Active Substance: IMIPRAMINE HYDROCHLORIDE
     Indication: URINARY INCONTINENCE
     Dates: start: 20140612, end: 20140619

REACTIONS (10)
  - Paraesthesia [Not Recovered/Not Resolved]
  - Restlessness [Recovered/Resolved]
  - Off label use [Unknown]
  - Hypoaesthesia [Not Recovered/Not Resolved]
  - Cerebrovascular accident [Unknown]
  - Insomnia [Recovered/Resolved]
  - Feeling abnormal [Recovered/Resolved]
  - Wrong technique in drug usage process [Unknown]
  - Hypoaesthesia [Not Recovered/Not Resolved]
  - Neuropathy peripheral [Unknown]

NARRATIVE: CASE EVENT DATE: 201406
